FAERS Safety Report 23485910 (Version 1)
Quarter: 2024Q1

REPORT INFORMATION
  Report Type: Spontaneous
  Country: GB (occurrence: GB)
  Receive Date: 20240206
  Receipt Date: 20240206
  Transmission Date: 20240410
  Serious: No
  Sender: FDA-Public Use
  Company Number: None

PATIENT
  Age: 65 Year
  Sex: Male
  Weight: 77 kg

DRUGS (1)
  1. EZETIMIBE [Suspect]
     Active Substance: EZETIMIBE
     Indication: Blood cholesterol increased
     Dosage: 10 MILLIGRAM, OD (ONCE A DAY) TABLET
     Route: 065
     Dates: start: 20230426, end: 20230526

REACTIONS (1)
  - Blood uric acid increased [Not Recovered/Not Resolved]

NARRATIVE: CASE EVENT DATE: 20230525
